FAERS Safety Report 22086196 (Version 1)
Quarter: 2023Q1

REPORT INFORMATION
  Report Type: Report from Study
  Country: US (occurrence: US)
  Receive Date: 20230310
  Receipt Date: 20230310
  Transmission Date: 20230418
  Serious: Yes (Hospitalization, Other)
  Sender: FDA-Public Use
  Company Number: US-NOVOPROD-1033998

PATIENT
  Sex: Male
  Weight: 97.068 kg

DRUGS (1)
  1. NOVOLOG [Suspect]
     Active Substance: INSULIN ASPART
     Indication: Diabetes mellitus
     Dosage: 12 UNITS
     Route: 058

REACTIONS (3)
  - Diabetic ketoacidosis [Unknown]
  - Incorrect dose administered [Unknown]
  - Device failure [Unknown]
